FAERS Safety Report 5592808-4 (Version None)
Quarter: 2008Q1

REPORT INFORMATION
  Report Type: 
  Country: None (occurrence: None)
  Receive Date: 20080116
  Receipt Date: 20080110
  Transmission Date: 20080703
  Serious: Yes (Hospitalization)
  Sender: FDA-Public Use
  Company Number: DEWYE690524MAY05

PATIENT
  Sex: Male

DRUGS (4)
  1. TACROLIMUS [Suspect]
     Indication: PROPHYLAXIS AGAINST TRANSPLANT REJECTION
     Dosage: 10 MG
     Route: 048
     Dates: start: 20050122, end: 20050214
  2. DACLIZUMAB [Concomitant]
     Indication: PROPHYLAXIS AGAINST TRANSPLANT REJECTION
     Dosage: ONCE 70 MG
  3. MYCOPHENOLATE MOFETIL [Suspect]
     Indication: PROPHYLAXIS AGAINST TRANSPLANT REJECTION
     Dosage: 1500 MG
     Route: 048
     Dates: start: 20050123, end: 20050213
  4. MYCOPHENOLATE MOFETIL [Suspect]
     Dosage: 1500 MG
     Route: 048
     Dates: start: 20050224

REACTIONS (2)
  - KLEBSIELLA SEPSIS [None]
  - NEUTROPENIA [None]
